FAERS Safety Report 22167073 (Version 1)
Quarter: 2023Q2

REPORT INFORMATION
  Report Type: Spontaneous
  Country: US (occurrence: None)
  Receive Date: 20230402
  Receipt Date: 20230402
  Transmission Date: 20230721
  Serious: Yes (Life-Threatening, Disabling)
  Sender: FDA-Public Use
  Company Number: None

PATIENT
  Age: 49 Year
  Sex: Female
  Weight: 66.15 kg

DRUGS (1)
  1. SUBOXONE [Suspect]
     Active Substance: BUPRENORPHINE HYDROCHLORIDE\NALOXONE HYDROCHLORIDE
     Dosage: OTHER QUANTITY : 45 TABLET(S);?FREQUENCY : TWICE A DAY;?
     Route: 060
     Dates: start: 20200401

REACTIONS (3)
  - Depression [None]
  - Suicidal behaviour [None]
  - Near death experience [None]

NARRATIVE: CASE EVENT DATE: 20200401
